FAERS Safety Report 19425040 (Version 4)
Quarter: 2024Q3

REPORT INFORMATION
  Report Type: Report from Study
  Country: US (occurrence: US)
  Receive Date: 20210617
  Receipt Date: 20240913
  Transmission Date: 20241017
  Serious: Yes (Hospitalization)
  Sender: ROCHE
  Company Number: US-ROCHE-2781634

PATIENT
  Age: 54 Year
  Sex: Female

DRUGS (21)
  1. ACTEMRA [Suspect]
     Active Substance: TOCILIZUMAB
     Indication: Iridocyclitis
     Dosage: ACTEMRA SDV 200MG/10ML
     Route: 042
  2. ACTEMRA [Suspect]
     Active Substance: TOCILIZUMAB
     Route: 042
     Dates: start: 201910, end: 202105
  3. ACTEMRA [Suspect]
     Active Substance: TOCILIZUMAB
     Route: 042
     Dates: start: 202204
  4. ACTEMRA [Suspect]
     Active Substance: TOCILIZUMAB
     Route: 042
     Dates: start: 20220831
  5. CELLCEPT [Suspect]
     Active Substance: MYCOPHENOLATE MOFETIL
     Indication: Uveitis
     Dosage: TAKE 3 TABLETS
     Route: 065
  6. RITUXAN [Suspect]
     Active Substance: RITUXIMAB
     Indication: Iridocyclitis
     Route: 065
     Dates: end: 202106
  7. ATENOLOL [Concomitant]
     Active Substance: ATENOLOL
     Route: 048
     Dates: start: 20140528
  8. CALCIUM [Concomitant]
     Active Substance: CALCIUM
     Route: 048
     Dates: start: 20220831
  9. DIFLUPREDNATE [Concomitant]
     Active Substance: DIFLUPREDNATE
  10. CEFIXIME [Concomitant]
     Active Substance: CEFIXIME
  11. GABAPENTIN [Concomitant]
     Active Substance: GABAPENTIN
     Dosage: 4 CAPSULES AT BEDTIME
     Route: 048
  12. HYDROCHLOROTHIAZIDE [Concomitant]
     Active Substance: HYDROCHLOROTHIAZIDE
     Route: 048
     Dates: start: 20240313
  13. RHOPRESSA [Concomitant]
     Active Substance: NETARSUDIL MESYLATE
     Route: 047
     Dates: start: 20240612
  14. RHOPRESSA [Concomitant]
     Active Substance: NETARSUDIL MESYLATE
     Route: 047
     Dates: start: 20220831
  15. SIMBRINZA [Concomitant]
     Active Substance: BRIMONIDINE TARTRATE\BRINZOLAMIDE
  16. TIMOLOL MALEATE [Concomitant]
     Active Substance: TIMOLOL MALEATE
  17. TRAVATAN Z [Concomitant]
     Active Substance: TRAVOPROST
  18. OTEZLA [Concomitant]
     Active Substance: APREMILAST
     Indication: Behcet^s syndrome
     Route: 048
  19. OMEPRAZOLE [Concomitant]
     Active Substance: OMEPRAZOLE
     Indication: Gastrooesophageal reflux disease
     Route: 048
  20. MUPIROCIN [Concomitant]
     Active Substance: MUPIROCIN
  21. PREDNISONE [Concomitant]
     Active Substance: PREDNISONE
     Indication: Uveitis
     Route: 048

REACTIONS (8)
  - Infection [Recovered/Resolved]
  - Eye disorder [Not Recovered/Not Resolved]
  - Off label use [Unknown]
  - Off label use [Unknown]
  - Skin ulcer [Recovered/Resolved]
  - COVID-19 [Not Recovered/Not Resolved]
  - Pain [Not Recovered/Not Resolved]
  - Off label use [Unknown]

NARRATIVE: CASE EVENT DATE: 20191001
